FAERS Safety Report 23579983 (Version 3)
Quarter: 2024Q2

REPORT INFORMATION
  Report Type: Report from Study
  Country: US (occurrence: US)
  Receive Date: 20240229
  Receipt Date: 20240502
  Transmission Date: 20240716
  Serious: No
  Sender: FDA-Public Use
  Company Number: US-TAKEDA-2024TUS018607

PATIENT
  Sex: Male
  Weight: 68.998 kg

DRUGS (2)
  1. ADAMTS13, RECOMBINANT-KRHN [Suspect]
     Active Substance: ADAMTS13, RECOMBINANT-KRHN
     Indication: Thrombotic thrombocytopenic purpura
     Dosage: 3000 INTERNATIONAL UNIT, 1/WEEK
     Route: 065
  2. ADAMTS13, RECOMBINANT-KRHN [Suspect]
     Active Substance: ADAMTS13, RECOMBINANT-KRHN
     Dosage: 3004 INTERNATIONAL UNIT, 1/WEEK
     Route: 042

REACTIONS (3)
  - Gastroenteritis viral [Unknown]
  - COVID-19 [Unknown]
  - Product administration error [Unknown]
